FAERS Safety Report 21307278 (Version 1)
Quarter: 2022Q3

REPORT INFORMATION
  Report Type: Other
  Country: CN (occurrence: CN)
  Receive Date: 20220908
  Receipt Date: 20220908
  Transmission Date: 20221027
  Serious: Yes (Other)
  Sender: FDA-Public Use
  Company Number: CN-GE HEALTHCARE-2022CSU006361

PATIENT
  Age: 81 Year
  Sex: Female

DRUGS (2)
  1. VISIPAQUE [Suspect]
     Active Substance: IODIXANOL
     Indication: Angiocardiogram
     Dosage: 32 GM, SINGLE
     Route: 013
     Dates: start: 20220811, end: 20220811
  2. VISIPAQUE [Suspect]
     Active Substance: IODIXANOL
     Indication: Acute myocardial infarction

REACTIONS (4)
  - Muscle strength abnormal [Recovering/Resolving]
  - Dysarthria [Recovering/Resolving]
  - Vision blurred [Recovering/Resolving]
  - Hallucination [Recovering/Resolving]

NARRATIVE: CASE EVENT DATE: 20220811
